FAERS Safety Report 5281540-2 (Version None)
Quarter: 2007Q1

REPORT INFORMATION
  Report Type: 
  Country: None (occurrence: None)
  Receive Date: 20061226
  Receipt Date: 20060818
  Transmission Date: 20070707
  Serious: No
  Sender: FDA-Public Use
  Company Number: PHEH2006US10655

PATIENT
  Age: 82 Year
  Sex: Male

DRUGS (1)
  1. ENABLEX [Suspect]
     Dosage: 7.5 MG, QD
     Dates: start: 20060817

REACTIONS (2)
  - CATHETER SITE PAIN [None]
  - CATHETER SITE RELATED REACTION [None]
